FAERS Safety Report 6211430-X (Version None)
Quarter: 2009Q2

REPORT INFORMATION
  Report Type: 
  Country: None (occurrence: None)
  Receive Date: 20090602
  Receipt Date: 20090526
  Transmission Date: 20091009
  Serious: Yes (Death)
  Sender: FDA-Public Use
  Company Number: IN-ELI_LILLY_AND_COMPANY-IN200904001403

PATIENT
  Age: 54 Year
  Sex: Male

DRUGS (1)
  1. XIGRIS [Suspect]
     Indication: UROSEPSIS
     Dosage: UNK, UNKNOWN
     Route: 042
     Dates: start: 20090403

REACTIONS (2)
  - DEATH [None]
  - THROMBOCYTOPENIA [None]
